FAERS Safety Report 4494256-7 (Version None)
Quarter: 2004Q4

REPORT INFORMATION
  Report Type: 
  Country: None (occurrence: None)
  Receive Date: 20041105
  Receipt Date: 20041027
  Transmission Date: 20050328
  Serious: Yes (Other)
  Sender: FDA-Public Use
  Company Number: PHBS2004NZ14332

PATIENT
  Age: 44 Year
  Sex: Female

DRUGS (5)
  1. CLOZARIL [Suspect]
     Indication: SCHIZOPHRENIA
     Route: 048
     Dates: start: 20030212, end: 20030317
  2. CLOZARIL [Suspect]
     Dosage: 100 MG, BID
     Route: 048
     Dates: start: 20041009
  3. CLOZARIL [Suspect]
     Dosage: 100 MG/D
     Route: 048
  4. VALPROIC ACID [Concomitant]
     Dosage: 500 MG, BID
     Route: 065
  5. QUETIAPINE [Concomitant]
     Dosage: 400 MG, TID
     Route: 065
     Dates: end: 20030228

REACTIONS (7)
  - BLOOD ALKALINE PHOSPHATASE INCREASED [None]
  - CATECHOLAMINES URINE INCREASED [None]
  - ELECTROCARDIOGRAM QT PROLONGED [None]
  - HEADACHE [None]
  - HYPERHIDROSIS [None]
  - PYREXIA [None]
  - TACHYCARDIA [None]
